FAERS Safety Report 7485677-9 (Version None)
Quarter: 2011Q2

REPORT INFORMATION
  Report Type: 
  Country: None (occurrence: None)
  Receive Date: 20110517
  Receipt Date: 20100621
  Transmission Date: 20111010
  Serious: No
  Sender: FDA-Public Use
  Company Number: US-PFIZER INC-2010060912

PATIENT
  Sex: Female

DRUGS (1)
  1. ESTROPIPATE [Suspect]

REACTIONS (2)
  - MENOPAUSAL SYMPTOMS [None]
  - NIGHT SWEATS [None]
